FAERS Safety Report 19812050 (Version 2)
Quarter: 2021Q4

REPORT INFORMATION
  Report Type: Report from Study
  Country: CH (occurrence: CH)
  Receive Date: 20210910
  Receipt Date: 20211007
  Transmission Date: 20220303
  Serious: Yes (Hospitalization)
  Sender: FDA-Public Use
  Company Number: CH-ROCHE-2903262

PATIENT
  Age: 70 Year
  Sex: Male
  Weight: 76 kg

DRUGS (8)
  1. ATEZOLIZUMAB [Suspect]
     Active Substance: ATEZOLIZUMAB
     Indication: Pleural mesothelioma malignant
     Dosage: FORM STRENGTH: 1200 MG/20 ML
     Route: 042
     Dates: start: 20201201, end: 20210716
  2. BEVACIZUMAB [Suspect]
     Active Substance: BEVACIZUMAB
     Indication: Pleural mesothelioma malignant
     Dosage: FORM STRENGTH: 400 MG/16 ML
     Route: 042
     Dates: start: 20201201, end: 20210716
  3. CARBOPLATIN [Suspect]
     Active Substance: CARBOPLATIN
     Indication: Pleural mesothelioma malignant
     Dosage: 4-6 CYCLES
     Route: 042
     Dates: start: 20201201, end: 20210218
  4. PEMETREXED [Suspect]
     Active Substance: PEMETREXED
     Indication: Pleural mesothelioma malignant
     Dosage: 4-6 CYCLES
     Route: 042
     Dates: start: 20201201, end: 20210218
  5. ROCEPHIN [Concomitant]
     Active Substance: CEFTRIAXONE SODIUM
  6. SPIRAMYCIN [Concomitant]
     Active Substance: SPIRAMYCIN
  7. OXYGEN [Concomitant]
     Active Substance: OXYGEN
  8. LOVENOX [Concomitant]
     Active Substance: ENOXAPARIN SODIUM

REACTIONS (1)
  - Pneumonia [Recovered/Resolved]

NARRATIVE: CASE EVENT DATE: 20210806
